FAERS Safety Report 7684075-2 (Version None)
Quarter: 2011Q3

REPORT INFORMATION
  Report Type: 
  Country: None (occurrence: None)
  Receive Date: 20110815
  Receipt Date: 20110803
  Transmission Date: 20111222
  Serious: Yes (Hospitalization)
  Sender: FDA-Public Use
  Company Number: US-BAUSCH-2011BL005247

PATIENT
  Age: 26 Year
  Sex: Female

DRUGS (9)
  1. CALCIUM D3 ^STADA^ [Concomitant]
     Indication: OSTEOPOROSIS
  2. MALARONE [Concomitant]
  3. ALENDRONIC ACID [Concomitant]
     Indication: OSTEOPOROSIS
  4. MESALAMINE [Concomitant]
     Indication: CROHN'S DISEASE
  5. CIPROFLOXACIN [Concomitant]
  6. CORTICOSTEROIDS [Concomitant]
  7. PREDNISOLONE [Suspect]
     Indication: CROHN'S DISEASE
  8. PREDNISOLONE [Suspect]
  9. AZATHIOPRINE [Suspect]
     Indication: CROHN'S DISEASE

REACTIONS (4)
  - ABORTION MISSED [None]
  - CYTOMEGALOVIRUS COLITIS [None]
  - CLOSTRIDIUM TEST POSITIVE [None]
  - MATERNAL EXPOSURE DURING PREGNANCY [None]
